FAERS Safety Report 7063841-0 (Version None)
Quarter: 2010Q4

REPORT INFORMATION
  Report Type: 
  Country: None (occurrence: None)
  Receive Date: 20101026
  Receipt Date: 20100930
  Transmission Date: 20110411
  Serious: No
  Sender: FDA-Public Use
  Company Number: US-ABBOTT-10P-163-0669879-00

PATIENT
  Sex: Female
  Weight: 74.91 kg

DRUGS (2)
  1. LUPRON DEPOT [Suspect]
     Indication: UTERINE LEIOMYOMA
     Route: 050
     Dates: start: 20100601, end: 20100820
  2. IRON SUPPLEMENT [Concomitant]
     Indication: ANAEMIA

REACTIONS (2)
  - ALOPECIA [None]
  - RASH [None]
